FAERS Safety Report 24443887 (Version 1)
Quarter: 2024Q4

REPORT INFORMATION
  Report Type: Spontaneous
  Country: RU (occurrence: RU)
  Receive Date: 20241016
  Receipt Date: 20241016
  Transmission Date: 20250114
  Serious: Yes (Other)
  Sender: TEVA
  Company Number: RU-TEVA-VS-3253536

PATIENT
  Age: 50 Year
  Sex: Female

DRUGS (1)
  1. SUMATRIPTAN [Suspect]
     Active Substance: SUMATRIPTAN
     Indication: Migraine
     Route: 065
     Dates: start: 20241009

REACTIONS (11)
  - Loss of consciousness [Unknown]
  - Hypoaesthesia [Unknown]
  - Tremor [Unknown]
  - Pollakiuria [Unknown]
  - Dyspnoea [Unknown]
  - Chest discomfort [Unknown]
  - Dyskinesia [Unknown]
  - Brain fog [Unknown]
  - Diarrhoea [Unknown]
  - Blood pressure fluctuation [Unknown]
  - Near death experience [Unknown]

NARRATIVE: CASE EVENT DATE: 20241009
